FAERS Safety Report 11464268 (Version 1)
Quarter: 2015Q3

REPORT INFORMATION
  Report Type: Spontaneous
  Country: US (occurrence: US)
  Receive Date: 20150831
  Receipt Date: 20150831
  Transmission Date: 20151125
  Serious: Yes (Hospitalization)
  Sender: FDA-Public Use
  Company Number: US-ELI_LILLY_AND_COMPANY-US201107007010

PATIENT
  Age: 55 Year
  Sex: Female

DRUGS (6)
  1. HALOPERIDOL. [Concomitant]
     Active Substance: HALOPERIDOL
  2. PREDNISONE. [Concomitant]
     Active Substance: PREDNISONE
  3. TEGRETOL [Concomitant]
     Active Substance: CARBAMAZEPINE
  4. TYLENOL WITH CODEINE [Concomitant]
     Active Substance: ACETAMINOPHEN\CODEINE PHOSPHATE
  5. CYMBALTA [Suspect]
     Active Substance: DULOXETINE HYDROCHLORIDE
     Indication: BACK PAIN
     Dosage: 60 MG, UNK
  6. REMICADE [Concomitant]
     Active Substance: INFLIXIMAB

REACTIONS (1)
  - Gastric haemorrhage [Recovered/Resolved]
